FAERS Safety Report 9413817 (Version 1)
Quarter: 2013Q3

REPORT INFORMATION
  Report Type: Spontaneous
  Country: BR (occurrence: BR)
  Receive Date: 20130723
  Receipt Date: 20130723
  Transmission Date: 20140515
  Serious: Yes (Hospitalization)
  Sender: FDA-Public Use
  Company Number: BR-NOVOPROD-383275

PATIENT
  Age: 68 Year
  Sex: Male
  Weight: 89 kg

DRUGS (9)
  1. NOVOLIN N [Suspect]
     Indication: TYPE 2 DIABETES MELLITUS
     Dosage: UNK (40 IU OR 45 IU IN THE MORNING AND 25 IU OR 30 IU AT NIGHT)
     Route: 058
     Dates: start: 1997
  2. AMIODARONE [Concomitant]
     Indication: ARRHYTHMIA
     Dosage: UNK (1 TAB, 200MG)
     Route: 048
  3. OMEPRAZOLE [Concomitant]
     Dosage: UNK (1 TAB, 20 MG)
     Route: 048
  4. VIVACOR                            /00802602/ [Concomitant]
     Indication: HYPERCHOLESTEROLAEMIA
     Dosage: UNK (1 TAB)
     Route: 048
  5. AAS [Concomitant]
     Indication: PROPHYLAXIS
     Dosage: UNK (1 TAB)
     Route: 048
  6. PURAN T4 [Concomitant]
     Indication: HYPOTHYROIDISM
     Dosage: UNK (1 TAB)
     Route: 048
  7. LASIX                              /00032601/ [Concomitant]
     Indication: DIURETIC THERAPY
     Dosage: UNK (1 TAB)
     Route: 048
  8. CARVEDILOL [Concomitant]
     Indication: HYPERTENSION
     Dosage: UNK (1 TAB IN THE MORNING AND 1 TAB AT NIGHT, 6.25 MG)
     Route: 048
  9. LOSARTAN [Concomitant]
     Indication: HYPERTENSION
     Dosage: UNK (1 TAB IN THE MORNING AND 1 TAB AT NIGHT, 50 MG)
     Route: 048

REACTIONS (3)
  - Influenza [Recovered/Resolved]
  - Drug ineffective [Unknown]
  - Blood glucose increased [Not Recovered/Not Resolved]
